FAERS Safety Report 9881661 (Version 3)
Quarter: 2014Q1

REPORT INFORMATION
  Report Type: Report from Study
  Country: US (occurrence: US)
  Receive Date: 20140207
  Receipt Date: 20140213
  Transmission Date: 20141002
  Serious: Yes (Death)
  Sender: FDA-Public Use
  Company Number: US-JNJFOC-20140113978

PATIENT
  Age: 91 Year
  Sex: Male
  Weight: 66.2 kg

DRUGS (16)
  1. IMBRUVICA [Suspect]
     Indication: CHRONIC LYMPHOCYTIC LEUKAEMIA
     Route: 048
     Dates: start: 20131224, end: 20140107
  2. COREG [Concomitant]
     Route: 048
     Dates: end: 20140109
  3. COUMADIN [Concomitant]
     Indication: AORTIC VALVE REPLACEMENT
     Route: 048
     Dates: end: 20140109
  4. RITUXAN [Concomitant]
     Indication: CHRONIC LYMPHOCYTIC LEUKAEMIA
     Dates: start: 20131204, end: 201312
  5. SOLU-MEDROL [Concomitant]
     Dosage: 1000 MG DAYS 1 THROUGH 3
     Dates: start: 20131204, end: 201312
  6. ALDACTONE [Concomitant]
     Route: 048
  7. ALLOPURINOL [Concomitant]
     Route: 048
  8. ALOPHEN (ALOIN, ATROPA BELLADONNA EXT, CEPHAELIS SPP, PHENOLPHTHALEIN [Concomitant]
     Route: 048
  9. ASPIRIN [Concomitant]
     Route: 048
  10. CENTRUM SILVER [Concomitant]
     Route: 048
  11. COLACE [Concomitant]
     Route: 048
  12. NITROGLYCERIN [Concomitant]
     Dosage: OINTMENT,CREAM
     Route: 062
  13. PRAVASTATIN SODIUM [Concomitant]
     Route: 048
  14. VALSARTAN [Concomitant]
     Route: 048
  15. XANAX [Concomitant]
     Route: 048
  16. ZANTAC [Concomitant]
     Route: 048

REACTIONS (3)
  - Hypophagia [Unknown]
  - Dehydration [Fatal]
  - Fatigue [Unknown]
